FAERS Safety Report 4309584-5 (Version None)
Quarter: 2004Q1

REPORT INFORMATION
  Report Type: 
  Country: None (occurrence: None)
  Receive Date: 20040302
  Receipt Date: 20040220
  Transmission Date: 20041129
  Serious: Yes (Life-Threatening, Hospitalization)
  Sender: FDA-Public Use
  Company Number: 2003189871US

PATIENT
  Age: 60 Year
  Sex: Female
  Weight: 93 kg

DRUGS (5)
  1. CELEBREX [Suspect]
     Indication: ARTHRALGIA
     Dosage: 100 MG
  2. INFLUENZA VACCINE ^DUPHAR^ (INFLUENZA VIRUS VACCINE POLYVALENT) [Concomitant]
  3. AMLODIPINE [Concomitant]
  4. LIPITOR [Concomitant]
  5. ASPIRIN [Concomitant]

REACTIONS (4)
  - ANAPHYLACTIC REACTION [None]
  - ANXIETY [None]
  - SELF-MEDICATION [None]
  - SHOCK [None]
